FAERS Safety Report 8934162 (Version 2)
Quarter: 2014Q4

REPORT INFORMATION
  Report Type: Spontaneous
  Country: US (occurrence: US)
  Receive Date: 20121129
  Receipt Date: 20141030
  Transmission Date: 20150529
  Serious: Yes (Other)
  Sender: FDA-Public Use
  Company Number: US-009507513-1211USA010834

PATIENT
  Sex: Female
  Weight: 147 kg

DRUGS (1)
  1. NUVARING [Suspect]
     Active Substance: ETHINYL ESTRADIOL\ETONOGESTREL
     Indication: CONTRACEPTION
     Dosage: UNK
     Route: 067
     Dates: start: 200901, end: 201207

REACTIONS (9)
  - Lymphoedema [Unknown]
  - Nausea [Unknown]
  - Vomiting [Unknown]
  - Back pain [Unknown]
  - Pain in extremity [Unknown]
  - Pulmonary embolism [Unknown]
  - Infection [Unknown]
  - Lymphadenopathy [Unknown]
  - Skin cosmetic procedure [Unknown]

NARRATIVE: CASE EVENT DATE: 201207
